FAERS Safety Report 8114165-1 (Version None)
Quarter: 2012Q1

REPORT INFORMATION
  Report Type: 
  Country: None (occurrence: None)
  Receive Date: 20120205
  Receipt Date: 20120127
  Transmission Date: 20120608
  Serious: Yes (Other)
  Sender: FDA-Public Use
  Company Number: PHHY2012JP007317

PATIENT
  Age: 70 Year
  Sex: Male

DRUGS (4)
  1. CANDESARTAN CILEXETIL [Concomitant]
  2. ALLOPURINOL [Concomitant]
     Dates: start: 20120101
  3. METILDIGOXIN [Concomitant]
  4. CEFTRIAXONE SODIUM [Suspect]
     Dosage: 1 G, UNK
     Route: 042
     Dates: start: 20120127, end: 20120127

REACTIONS (3)
  - HEART RATE INCREASED [None]
  - C-REACTIVE PROTEIN INCREASED [None]
  - ASTHMA [None]
